FAERS Safety Report 15335535 (Version 2)
Quarter: 2018Q3

REPORT INFORMATION
  Report Type: Spontaneous
  Country: US (occurrence: US)
  Receive Date: 20180830
  Receipt Date: 20180918
  Transmission Date: 20181010
  Serious: Yes (Other)
  Sender: FDA-Public Use
  Company Number: US-TEVA-2018-US-948461

PATIENT
  Age: 72 Year
  Sex: Female

DRUGS (3)
  1. IRON [Suspect]
     Active Substance: IRON
     Indication: MINERAL SUPPLEMENTATION
     Route: 048
  2. MYCOPHENOLATE MOFETIL. [Suspect]
     Active Substance: MYCOPHENOLATE MOFETIL
     Indication: IMMUNOSUPPRESSANT DRUG THERAPY
     Route: 065
  3. PLASMA [Concomitant]
     Active Substance: HUMAN PLASMA
     Indication: HASHIMOTO^S ENCEPHALOPATHY
     Route: 065

REACTIONS (2)
  - Ophthalmic herpes zoster [Unknown]
  - Gastrointestinal disorder [Unknown]
